FAERS Safety Report 6648251-X (Version None)
Quarter: 2010Q1

REPORT INFORMATION
  Report Type: 
  Country: None (occurrence: None)
  Receive Date: 20100324
  Receipt Date: 20100316
  Transmission Date: 20100710
  Serious: Yes (Hospitalization, Disabling, Other)
  Sender: FDA-Public Use
  Company Number: US-ROCHE-419585

PATIENT
  Sex: Male
  Weight: 65.8 kg

DRUGS (1)
  1. ACCUTANE [Suspect]
     Route: 048
     Dates: start: 19931119, end: 19940421

REACTIONS (45)
  - ANGINA PECTORIS [None]
  - ANXIETY [None]
  - ARTHRALGIA [None]
  - ASCITES [None]
  - ASTHENIA [None]
  - BACK PAIN [None]
  - BLOOD GLUCOSE INCREASED [None]
  - BONE PAIN [None]
  - BRONCHITIS [None]
  - CHEILITIS [None]
  - CHILLS [None]
  - CHRONIC FATIGUE SYNDROME [None]
  - COLITIS [None]
  - COLITIS ULCERATIVE [None]
  - CROHN'S DISEASE [None]
  - DECREASED APPETITE [None]
  - DEPRESSION [None]
  - DISCOMFORT [None]
  - DISTURBANCE IN ATTENTION [None]
  - DRUG ABUSER [None]
  - DRY EYE [None]
  - ECONOMIC PROBLEM [None]
  - EMOTIONAL DISORDER [None]
  - ERECTILE DYSFUNCTION [None]
  - GASTRITIS [None]
  - GASTROINTESTINAL DISORDER [None]
  - IMPAIRED WORK ABILITY [None]
  - INFLAMMATORY BOWEL DISEASE [None]
  - INSOMNIA [None]
  - INTESTINAL HAEMORRHAGE [None]
  - LIMB INJURY [None]
  - MAJOR DEPRESSION [None]
  - MOOD SWINGS [None]
  - MULTI-ORGAN DISORDER [None]
  - MULTIPLE INJURIES [None]
  - NIGHTMARE [None]
  - OROPHARYNGEAL PAIN [None]
  - PYELONEPHRITIS [None]
  - STRESS [None]
  - SUICIDAL IDEATION [None]
  - SUNBURN [None]
  - TOOTHACHE [None]
  - UPPER RESPIRATORY TRACT INFECTION [None]
  - WEIGHT DECREASED [None]
  - XEROSIS [None]
